FAERS Safety Report 9271870 (Version 1)
Quarter: 2013Q2

REPORT INFORMATION
  Report Type: Spontaneous
  Country: US (occurrence: US)
  Receive Date: 20130506
  Receipt Date: 20130506
  Transmission Date: 20140414
  Serious: Yes (Other)
  Sender: FDA-Public Use
  Company Number: US-AMGEN-USASP2013030329

PATIENT
  Age: 81 Year
  Sex: Female

DRUGS (2)
  1. NPLATE [Suspect]
     Indication: IDIOPATHIC THROMBOCYTOPENIC PURPURA
     Dosage: UNK
     Dates: start: 201003
  2. PROMACTA [Concomitant]

REACTIONS (7)
  - Polyp [Unknown]
  - Hearing impaired [Unknown]
  - Platelet count decreased [Unknown]
  - Glucose tolerance impaired [Unknown]
  - Incorrect dose administered [Unknown]
  - Dizziness [Unknown]
  - Dyspepsia [Unknown]
